FAERS Safety Report 20543550 (Version 1)
Quarter: 2022Q1

REPORT INFORMATION
  Report Type: Spontaneous
  Country: US (occurrence: None)
  Receive Date: 20220302
  Receipt Date: 20220302
  Transmission Date: 20220423
  Serious: No
  Sender: FDA-Public Use
  Company Number: 2022A072884

PATIENT
  Age: 52 Year
  Sex: Female

DRUGS (1)
  1. PULMICORT FLEXHALER [Suspect]
     Active Substance: BUDESONIDE
     Indication: Respiratory rate decreased
     Dosage: 90MCG 1 PUFF TWICE DAILY
     Route: 055

REACTIONS (9)
  - Feeling jittery [Recovered/Resolved]
  - Tremor [Recovered/Resolved]
  - Intentional device misuse [Recovered/Resolved]
  - Inappropriate schedule of product administration [Recovered/Resolved]
  - Extra dose administered [Recovered/Resolved]
  - Device use issue [Recovered/Resolved]
  - Product prescribing error [Recovered/Resolved]
  - Device malfunction [Unknown]
  - Wrong technique in device usage process [Unknown]

NARRATIVE: CASE EVENT DATE: 20220101
